FAERS Safety Report 16222567 (Version 1)
Quarter: 2019Q2

REPORT INFORMATION
  Report Type: Spontaneous
  Country: US (occurrence: US)
  Receive Date: 20190422
  Receipt Date: 20190422
  Transmission Date: 20190711
  Serious: No
  Sender: FDA-Public Use
  Company Number: US-MYLANLABS-2019M1030764

PATIENT
  Sex: Female

DRUGS (1)
  1. TADALAFIL TABLETS USP [Suspect]
     Active Substance: TADALAFIL
     Indication: PRODUCT USED FOR UNKNOWN INDICATION
     Dosage: UNK

REACTIONS (5)
  - Fatigue [Unknown]
  - Myalgia [Unknown]
  - Vomiting [Unknown]
  - Nausea [Unknown]
  - Headache [Unknown]
